FAERS Safety Report 9215424 (Version 1)
Quarter: 2013Q2

REPORT INFORMATION
  Report Type: Report from Study
  Country: AR (occurrence: AR)
  Receive Date: 20130405
  Receipt Date: 20130405
  Transmission Date: 20140414
  Serious: Yes (Life-Threatening, Hospitalization, Disabling, Other)
  Sender: FDA-Public Use
  Company Number: AR-AMGEN LTD.-KDC386672

PATIENT
  Age: 74 Year
  Sex: Male

DRUGS (8)
  1. DENOSUMAB [Suspect]
     Indication: PROSTATE CANCER
     Dosage: UNK BLINDED, Q4WK
     Route: 058
     Dates: start: 20070802, end: 20100222
  2. FERRANIN                           /00023501/ [Concomitant]
     Dosage: UNK UNK, QD
     Route: 048
  3. ATENOLOL [Concomitant]
     Dosage: 50 MG, QD
     Route: 048
  4. ENALAPRIL [Concomitant]
     Dosage: 5 MG, QD
     Route: 048
  5. ENALAPRIL [Concomitant]
     Dosage: 10 MG, Q12H
     Route: 050
     Dates: start: 20100302, end: 20100316
  6. ENALAPRIL [Concomitant]
     Dosage: 5 MG, Q12H
     Route: 050
     Dates: start: 20100317
  7. CALCIUM [Concomitant]
     Dosage: 500 MG, QD
     Route: 048
  8. VITAMIN D /00107901/ [Concomitant]
     Dosage: 400 IU, QD
     Route: 048

REACTIONS (4)
  - Osteomyelitis [Recovered/Resolved]
  - Cardiac arrest [Recovered/Resolved]
  - Coma [Not Recovered/Not Resolved]
  - Convulsion [Not Recovered/Not Resolved]
